FAERS Safety Report 6903890-3 (Version None)
Quarter: 2010Q3

REPORT INFORMATION
  Report Type: 
  Country: None (occurrence: None)
  Receive Date: 20100804
  Receipt Date: 20090131
  Transmission Date: 20110219
  Serious: No
  Sender: FDA-Public Use
  Company Number: US-PFIZER INC-2009164257

PATIENT
  Sex: Female
  Weight: 54.4 kg

DRUGS (12)
  1. LYRICA [Suspect]
     Indication: HERPES ZOSTER
     Dosage: 75 MG, 2X/DAY
     Dates: start: 20090129
  2. ATIVAN [Concomitant]
     Dosage: UNK
  3. CELEXA [Concomitant]
     Dosage: UNK
  4. PREMARIN [Concomitant]
     Dosage: UNK
  5. PRILOSEC [Concomitant]
     Dosage: UNK
  6. MULTI-VITAMINS [Concomitant]
     Dosage: UNK
  7. VITAMIN E [Concomitant]
     Dosage: UNK
  8. GARLIC [Concomitant]
     Dosage: UNK
  9. VYTORIN [Concomitant]
     Dosage: UNK
  10. VALIUM [Concomitant]
     Dosage: UNK
  11. CALCIUM WITH VITAMIN D [Concomitant]
     Dosage: UNK
  12. PERCOCET [Concomitant]
     Dosage: UNK

REACTIONS (3)
  - FATIGUE [None]
  - SOMNOLENCE [None]
  - TREMOR [None]
